FAERS Safety Report 9677424 (Version 1)
Quarter: 2013Q4

REPORT INFORMATION
  Report Type: Spontaneous
  Country: US (occurrence: US)
  Receive Date: 20131108
  Receipt Date: 20131108
  Transmission Date: 20140711
  Serious: Yes (Other)
  Sender: FDA-Public Use
  Company Number: US-SA-2013SA114284

PATIENT
  Age: 87 Year
  Sex: Female

DRUGS (2)
  1. LANTUS SOLOSTAR [Suspect]
     Dosage: START FROM THREE YEARS DOSE:15 UNIT(S)
     Route: 058
  2. SOLOSTAR [Concomitant]

REACTIONS (2)
  - Osteoporosis [Unknown]
  - Disability [Unknown]
